FAERS Safety Report 13494507 (Version 3)
Quarter: 2018Q1

REPORT INFORMATION
  Report Type: Spontaneous
  Country: JP (occurrence: JP)
  Receive Date: 20170428
  Receipt Date: 20180108
  Transmission Date: 20180508
  Serious: Yes (Other)
  Sender: FDA-Public Use
  Company Number: JP-SUN PHARMACEUTICAL INDUSTRIES LTD-2017RR-139303

PATIENT
  Age: 64 Year
  Sex: Male

DRUGS (5)
  1. METHOTREXATE. [Suspect]
     Active Substance: METHOTREXATE
     Indication: MYOPATHY
     Dosage: WEEKLY
     Route: 065
  2. IMATINIB [Suspect]
     Active Substance: IMATINIB
     Indication: CHRONIC MYELOID LEUKAEMIA
     Dosage: 400 MG, DAILY
     Route: 065
  3. IMMUNOGLOBULIN IV [Concomitant]
     Active Substance: HUMAN IMMUNOGLOBULIN G
     Indication: MYOPATHY
     Dosage: TRI-ANNUAL
     Route: 042
  4. PREDNISOLONE. [Suspect]
     Active Substance: PREDNISOLONE
     Indication: MYOPATHY
     Dosage: UNK UNK, DAILY
     Route: 065
  5. IMATINIB [Suspect]
     Active Substance: IMATINIB
     Dosage: 200 MG, DAILY
     Route: 065

REACTIONS (4)
  - Blood creatine phosphokinase increased [Recovering/Resolving]
  - Diabetes mellitus [Unknown]
  - Condition aggravated [Unknown]
  - Chronic myeloid leukaemia [Unknown]
